FAERS Safety Report 6399252-0 (Version None)
Quarter: 2009Q4

REPORT INFORMATION
  Report Type: 
  Country: None (occurrence: None)
  Receive Date: 20091014
  Receipt Date: 20070711
  Transmission Date: 20100525
  Serious: Yes (Hospitalization, Other)
  Sender: FDA-Public Use
  Company Number: US-ASTRAZENECA-2006UW26727

PATIENT
  Age: 44 Year
  Sex: Female
  Weight: 53.5 kg

DRUGS (13)
  1. SEROQUEL [Suspect]
     Indication: HALLUCINATION, AUDITORY
     Dosage: STRENGTH 20MG, 25MG, 100MG, 400MG  DOSE 50MG-1200MG
     Route: 048
     Dates: start: 20000929
  2. RISPERDAL [Suspect]
     Dates: start: 20090203
  3. ZYPREXA [Suspect]
     Dosage: 7.5MG,10MG AT NIGHT
     Dates: start: 20090203
  4. HALDOL [Concomitant]
  5. PROZAC [Concomitant]
     Dosage: STRENGTH 20MG, 40MG, 60MG
     Dates: start: 20000929
  6. ATIVAN [Concomitant]
     Dosage: STRENGTH-1MG  DOSE-2MG, 3MG
     Route: 048
     Dates: start: 19970101
  7. VISTARIL [Concomitant]
     Route: 048
     Dates: start: 19980311
  8. ROZEREM [Concomitant]
     Dates: start: 19980311
  9. EFFEXOR XR [Concomitant]
     Route: 048
     Dates: start: 20000929
  10. NEXIUM [Concomitant]
     Dosage: EVERYDAY
     Route: 042
  11. LOPRESSOR [Concomitant]
     Dates: start: 20040119
  12. PRILOSEC [Concomitant]
     Dates: start: 19990122
  13. ZANTAC [Concomitant]
     Dates: start: 20060717

REACTIONS (6)
  - DIABETES MELLITUS [None]
  - DIABETIC GASTROPARESIS [None]
  - PANCREATITIS [None]
  - PANCREATITIS ACUTE [None]
  - PANCREATITIS CHRONIC [None]
  - TYPE 2 DIABETES MELLITUS [None]
